FAERS Safety Report 9783080 (Version 1)
Quarter: 2013Q4

REPORT INFORMATION
  Report Type: Report from Study
  Country: IN (occurrence: IN)
  Receive Date: 20131226
  Receipt Date: 20131226
  Transmission Date: 20140711
  Serious: Yes (Hospitalization)
  Sender: FDA-Public Use
  Company Number: PHHY2013IN150290

PATIENT
  Age: 19 Year
  Sex: Male
  Weight: 48.8 kg

DRUGS (54)
  1. MYCOPHENOLIC ACID [Suspect]
     Indication: IMMUNOSUPPRESSION
     Dosage: 720 MG, BID
     Route: 048
     Dates: start: 20130423
  2. TACROLIMUS [Suspect]
     Indication: IMMUNOSUPPRESSION
     Dosage: 3.0 (UNIT UNSPECIFED) BID
     Route: 048
     Dates: start: 20130423
  3. BACTRIM [Concomitant]
     Dosage: 1 DF, AT NIGHT 10PM
     Dates: start: 20130517
  4. BACTRIM [Concomitant]
     Dosage: 1 DF, AT NIGHT 10PM
     Dates: start: 20130518
  5. BACTRIM [Concomitant]
     Dosage: 1 DF, AT NIGHT 10PM
     Dates: start: 20130519
  6. NICARDIA [Concomitant]
     Dosage: 1 DF, AT 10PM
     Dates: start: 20130426
  7. NICARDIA [Concomitant]
     Dosage: 1 DF, AT 10PM AND AT 10AM
     Dates: start: 20130427
  8. NICARDIA [Concomitant]
     Dosage: 1 DF, AT 10PM
     Dates: start: 20130428
  9. NICARDIA [Concomitant]
     Dosage: 1 DF, AT 10PM AND AT 10 AM
     Dates: start: 20130429
  10. NICARDIA [Concomitant]
     Dosage: 1 DF, AT 10PM AND AT 10AM
     Dates: start: 20130430
  11. NICARDIA [Concomitant]
     Dosage: 1 DF, AT 10PM AND AT 10AM
     Dates: start: 20130501
  12. NICARDIA [Concomitant]
     Dosage: 1 DF, AT 10PM AND AT 10AM
     Dates: start: 20130502
  13. NICARDIA [Concomitant]
     Dosage: 1 DF, AT 10PM AND AT 12PM
     Dates: start: 20130503
  14. NICARDIA [Concomitant]
     Dosage: 1 DF, AT 10 AM
     Dates: start: 20130504
  15. NICARDIA [Concomitant]
     Dosage: 1 DF, BID AT 8 AM AND 8 PM
     Dates: start: 20130517
  16. NICARDIA [Concomitant]
     Dosage: 1 DF, BID AT 8 AM AND 8 PM
     Dates: start: 20130518
  17. NICARDIA [Concomitant]
     Dosage: 1 DF, BID AT 8 AM AND 8 PM
     Dates: start: 20130519
  18. NICARDIA [Concomitant]
     Dosage: 1 DF, AT 8AM
     Dates: start: 20130520
  19. NEBICARD [Concomitant]
     Dosage: 1 DF, AT 4 PM
     Dates: start: 20130426
  20. NEBICARD [Concomitant]
     Dosage: 1 DF,AT 1PM
     Dates: start: 20130427
  21. NEBICARD [Concomitant]
     Dosage: 1 DF, AT 2PM
     Dates: start: 20130428
  22. NEBICARD [Concomitant]
     Dosage: 1 DF, UNK
     Dates: start: 20130429
  23. NEBICARD [Concomitant]
     Dosage: 1 DF, AT 8PM
     Dates: start: 20130430
  24. NEBICARD [Concomitant]
     Dosage: 1 DF,AT 2PM
     Dates: start: 20130501
  25. NEBICARD [Concomitant]
     Dosage: 1 DF, AT 4PM
     Dates: start: 20130502
  26. NEBICARD [Concomitant]
     Dosage: 1 DF,AT 2PM
     Dates: start: 20130503
  27. NEBICARD [Concomitant]
     Dosage: 1 DF,AT 3PM
     Dates: start: 20130504
  28. NEBICARD [Concomitant]
     Dosage: 1 DF, AT 2PM
     Dates: start: 20130517
  29. NEBICARD [Concomitant]
     Dosage: 1 DF, AT 6PM
     Dates: start: 20130518
  30. NEBICARD [Concomitant]
     Dosage: 1 DF, AT 2PM
     Dates: start: 20130519
  31. SPORLAC [Concomitant]
     Dosage: 2-2-2 AT 11AM,6PM AND 12 PM
     Dates: start: 20130519
  32. SPORLAC [Concomitant]
     Dosage: AT 6AM
     Dates: start: 20130520
  33. METROGYL [Concomitant]
     Dosage: 400 MG, TID AT 11AM 6 PM AND 12PM
     Dates: start: 20130519
  34. METROGYL [Concomitant]
     Dosage: 400 MG,  AT 6AM
     Dates: start: 20130520
  35. METHYLPREDISOLONE [Concomitant]
     Dosage: 1 G IN 100ML OVER 1HOUR
     Dates: start: 20130428
  36. REGLAN//METOCLOPRAMIDE [Concomitant]
     Dosage: 1 G, BID AT 9 AM AND 9PM
     Dates: start: 20130425
  37. SEPTRA DS [Concomitant]
     Dosage: AT 10 PM
     Dates: start: 20130426
  38. SEPTRA DS [Concomitant]
     Dosage: AT 10 PM
     Dates: start: 20130427
  39. SEPTRA DS [Concomitant]
     Dosage: AT 10 PM
     Dates: start: 20130428
  40. SEPTRA DS [Concomitant]
     Dosage: AT 10 PM
     Dates: start: 20130429
  41. SEPTRA DS [Concomitant]
     Dosage: AT 10 PM
     Dates: start: 20130430
  42. SEPTRA DS [Concomitant]
     Dosage: AT 10 PM
     Dates: start: 20130501
  43. SEPTRA DS [Concomitant]
     Dosage: AT 10 PM
     Dates: start: 20130502
  44. SEPTRA DS [Concomitant]
     Dosage: AT 10 PM
     Dates: start: 20130503
  45. ZOBACTIN [Concomitant]
     Dosage: 1 DF,AT 1 PM AND AT 10PM
     Dates: start: 20130426
  46. ZOBACTIN [Concomitant]
     Dosage: 1 DF, AT 1PM, AT 10PM
     Dates: start: 20130427
  47. ZOBACTIN [Concomitant]
     Dosage: 1 DF, AT 2PM AND AT 10PM
     Dates: start: 20130428
  48. ZOBACTIN [Concomitant]
     Dosage: 1 DF, AT 2PM, 6AM TO PM
     Dates: start: 20130429
  49. ZOBACTIN [Concomitant]
     Dosage: 1 DF,6AM, 2PM, 10PM
     Dates: start: 20130430
  50. ZOBACTIN [Concomitant]
     Dosage: 1 DF, ,6AM, 2PM, 10PM
     Dates: start: 20130501
  51. ZOBACTIN [Concomitant]
     Dosage: 1 DF,,6AM, 2PM, 10PM
     Dates: start: 20130502
  52. ZOBACTIN [Concomitant]
     Dosage: 1 DF, AT 6AM
     Dates: start: 20130503
  53. CELLCEPT [Concomitant]
     Dosage: UNK UKN, UNK
  54. WYSOLONE [Concomitant]
     Dosage: 15 MG, UNK

REACTIONS (9)
  - Lymphocyte count decreased [Unknown]
  - Leukocytosis [Unknown]
  - Pyrexia [Recovered/Resolved]
  - Diarrhoea [Recovered/Resolved]
  - Haemoglobin decreased [Unknown]
  - Blood creatinine increased [Unknown]
  - Blood chloride increased [Unknown]
  - Blood bicarbonate decreased [Unknown]
  - Blood glucose increased [Unknown]
